FAERS Safety Report 7785488-0 (Version None)
Quarter: 2011Q3

REPORT INFORMATION
  Report Type: 
  Country: None (occurrence: None)
  Receive Date: 20110929
  Receipt Date: 20110921
  Transmission Date: 20111222
  Serious: Yes (Hospitalization)
  Sender: FDA-Public Use
  Company Number: US-JNJFOC-20110909575

PATIENT
  Sex: Female

DRUGS (9)
  1. DURAGESIC-100 [Suspect]
     Route: 062
     Dates: start: 20110805, end: 20110801
  2. PHENERGAN HCL [Concomitant]
     Indication: NAUSEA
     Route: 048
  3. DURAGESIC-100 [Suspect]
     Indication: PAIN
     Route: 062
     Dates: start: 20110801
  4. FLEXERIL [Concomitant]
     Indication: MUSCLE TIGHTNESS
     Route: 048
  5. DIAZEPAM [Concomitant]
     Indication: ANXIETY
     Route: 048
     Dates: end: 20110101
  6. EFFEXOR [Concomitant]
     Indication: PRODUCT USED FOR UNKNOWN INDICATION
     Route: 048
     Dates: end: 20110101
  7. NEXIUM [Concomitant]
     Indication: GASTROOESOPHAGEAL REFLUX DISEASE
     Route: 048
  8. NARCOTIC ANALGESICS, NOS [Concomitant]
     Indication: PAIN
     Route: 048
     Dates: end: 20110101
  9. DURAGESIC-100 [Suspect]
     Route: 062
     Dates: start: 20030101

REACTIONS (11)
  - WRONG TECHNIQUE IN DRUG USAGE PROCESS [None]
  - CONTUSION [None]
  - PAIN [None]
  - PRODUCT QUALITY ISSUE [None]
  - HAEMATOMA [None]
  - THINKING ABNORMAL [None]
  - GASTROINTESTINAL PERFORATION [None]
  - EXPIRED DRUG ADMINISTERED [None]
  - HYSTERECTOMY [None]
  - DRUG ADMINISTERED AT INAPPROPRIATE SITE [None]
  - WITHDRAWAL SYNDROME [None]
